FAERS Safety Report 6779058-0 (Version None)
Quarter: 2010Q2

REPORT INFORMATION
  Report Type: 
  Country: None (occurrence: None)
  Receive Date: 20100618
  Receipt Date: 20100607
  Transmission Date: 20101027
  Serious: Yes (Other)
  Sender: FDA-Public Use
  Company Number: DE-PFIZER INC-2010052018

PATIENT
  Age: 56 Year
  Sex: Female

DRUGS (8)
  1. GENOTROPIN [Suspect]
     Indication: MULTIPLE SCLEROSIS
     Dosage: 1 MG, 1X/DAY
     Route: 058
     Dates: start: 20100127, end: 20100407
  2. CITALOPRAM [Concomitant]
     Indication: ASTHENIA
     Dosage: 30 MG, 1X/DAY
     Route: 048
     Dates: end: 20100407
  3. CITALOPRAM [Concomitant]
     Indication: DEPRESSION
     Dosage: UNK
     Dates: start: 20100506
  4. TORASEMIDE [Concomitant]
     Indication: HYPERTENSION
     Dosage: 10 MG, 1-1/2-0
     Dates: end: 20100407
  5. TORASEMIDE [Concomitant]
     Dosage: UNK
     Dates: start: 20100506
  6. METOPROLOL SUCCINATE [Concomitant]
     Indication: HYPERTENSION
     Dosage: 95 MG, 1X/DAY
     Route: 048
     Dates: end: 20100407
  7. METOPROLOL SUCCINATE [Concomitant]
     Dosage: UNK
     Dates: start: 20100506
  8. FOLIC ACID [Concomitant]
     Dosage: 5 MG, 1X/DAY

REACTIONS (1)
  - AUTOIMMUNE HEPATITIS [None]
